FAERS Safety Report 8777684 (Version 2)
Quarter: 2012Q4

REPORT INFORMATION
  Report Type: 
  Country: JP (occurrence: JP)
  Receive Date: 20120910
  Receipt Date: 20121120
  Transmission Date: 20130627
  Serious: No
  Sender: FDA-Public Use
  Company Number: JP-ELI_LILLY_AND_COMPANY-JP201206002443

PATIENT
  Age: 37 Year
  Sex: Female

DRUGS (25)
  1. ZYPREXA [Suspect]
     Indication: SCHIZOPHRENIA, PARANOID TYPE
     Dosage: 20 mg, qd
     Route: 048
     Dates: start: 20100702, end: 20100819
  2. ZYPREXA [Suspect]
     Dosage: 17.5 mg, qd
     Route: 048
     Dates: start: 20100820, end: 20100826
  3. ZYPREXA [Suspect]
     Dosage: 15 mg, qd
     Route: 048
     Dates: start: 20100827, end: 20100902
  4. ZYPREXA [Suspect]
     Dosage: 12.5 mg, qd
     Route: 048
     Dates: start: 20100903, end: 20100909
  5. ZYPREXA [Suspect]
     Dosage: 10 mg, qd
     Route: 048
     Dates: start: 20100910, end: 20100916
  6. ZYPREXA [Suspect]
     Dosage: 7.5 mg, qd
     Route: 048
     Dates: start: 20100917, end: 20100923
  7. ZYPREXA [Suspect]
     Dosage: 5 mg, qd
     Route: 048
     Dates: start: 20100924, end: 20101007
  8. ZYPREXA [Suspect]
     Dosage: 2.5 mg, qd
     Route: 048
     Dates: start: 20101008, end: 20101015
  9. ZYPREXA [Suspect]
     Dosage: 10 mg, qd
     Route: 048
     Dates: start: 20120507, end: 20120520
  10. ZYPREXA [Suspect]
     Dosage: 15 mg, qd
     Route: 048
     Dates: start: 20120521, end: 20120618
  11. ZYPREXA [Suspect]
     Dosage: 20 mg, qd
     Route: 048
     Dates: start: 20120619, end: 20120723
  12. ZYPREXA [Suspect]
     Dosage: 20 mg, qd
     Route: 048
     Dates: start: 20120725
  13. RISPERIDONE [Concomitant]
     Indication: SCHIZOPHRENIA, PARANOID TYPE
     Dosage: UNK
     Route: 048
     Dates: start: 20100716, end: 20100716
  14. RISPERIDONE [Concomitant]
     Dosage: UNK
     Route: 048
     Dates: start: 20101029, end: 20110106
  15. RISPERIDONE [Concomitant]
     Dosage: UNK
     Route: 048
     Dates: start: 20110107, end: 2011
  16. RISPERIDONE [Concomitant]
     Dosage: UNK
     Route: 048
     Dates: start: 20120611, end: 20120723
  17. RISPERIDONE [Concomitant]
     Dosage: UNK
     Route: 048
     Dates: start: 20120725
  18. AMOBAN [Concomitant]
     Indication: INSOMNIA
     Dosage: UNK
     Route: 048
     Dates: start: 20120507
  19. ROHYPNOL [Concomitant]
     Indication: SCHIZOPHRENIA, PARANOID TYPE
     Dosage: UNK
     Route: 048
     Dates: start: 20120507, end: 20120610
  20. ROHYPNOL [Concomitant]
     Dosage: UNK
     Route: 048
     Dates: start: 20120611, end: 20120702
  21. ROHYPNOL [Concomitant]
     Dosage: UNK
     Route: 048
     Dates: start: 20120703, end: 20120723
  22. ROHYPNOL [Concomitant]
     Dosage: UNK
     Route: 048
     Dates: start: 20120725
  23. ABILIFY [Concomitant]
     Indication: SCHIZOPHRENIA, PARANOID TYPE
     Dosage: UNK
     Route: 048
     Dates: start: 201108
  24. ABILIFY [Concomitant]
     Dosage: UNK
     Route: 048
     Dates: start: 201203, end: 201203
  25. ABILIFY [Concomitant]
     Dosage: UNK
     Route: 048
     Dates: start: 20120420, end: 20120506

REACTIONS (5)
  - Macrosomia [Recovered/Resolved]
  - Exposure during pregnancy [Recovered/Resolved]
  - Gestational diabetes [Recovered/Resolved]
  - Apraxia [Recovered/Resolved]
  - Apraxia [Recovering/Resolving]
